FAERS Safety Report 13726015 (Version 2)
Quarter: 2017Q3

REPORT INFORMATION
  Report Type: Spontaneous
  Country: US (occurrence: US)
  Receive Date: 20170706
  Receipt Date: 20170803
  Transmission Date: 20171127
  Serious: Yes (Hospitalization, Other)
  Sender: FDA-Public Use
  Company Number: US-SUPERNUS PHARMACEUTICALS, INC.-2017SUP00161

PATIENT
  Age: 27 Year
  Sex: Female
  Weight: 59.86 kg

DRUGS (7)
  1. KEPPRA [Concomitant]
     Active Substance: LEVETIRACETAM
     Dosage: UNK
  2. OXTELLAR XR [Suspect]
     Active Substance: OXCARBAZEPINE
     Indication: SEIZURE
     Dosage: 1200 MG, 1X/DAY
     Route: 048
     Dates: end: 20170718
  3. OXTELLAR XR [Suspect]
     Active Substance: OXCARBAZEPINE
     Indication: EPILEPSY
     Dosage: 150 MG, 1X/DAY
     Route: 048
  4. OXTELLAR XR [Suspect]
     Active Substance: OXCARBAZEPINE
     Dosage: 600 MG IN THE MORNING AND TWO 600 MG CAPSULES AT BEDTIME
     Dates: start: 20170719
  5. OXTELLAR XR [Suspect]
     Active Substance: OXCARBAZEPINE
     Indication: SEIZURE
     Dosage: 300 MG, 1X/DAY
     Route: 048
     Dates: end: 20170718
  6. OXTELLAR XR [Suspect]
     Active Substance: OXCARBAZEPINE
     Dosage: UNK
     Dates: start: 20170629
  7. VIMPAT [Concomitant]
     Active Substance: LACOSAMIDE

REACTIONS (7)
  - Chest discomfort [Recovered/Resolved]
  - Brain operation [Unknown]
  - Drug effect decreased [Unknown]
  - Seizure [Not Recovered/Not Resolved]
  - Drug withdrawal convulsions [Recovered/Resolved]
  - Drug dose omission [Recovered/Resolved]
  - Eye movement disorder [Recovered/Resolved]

NARRATIVE: CASE EVENT DATE: 201706
